FAERS Safety Report 8399680-8 (Version None)
Quarter: 2012Q2

REPORT INFORMATION
  Report Type: 
  Country: None (occurrence: None)
  Receive Date: 20120531
  Receipt Date: 20120523
  Transmission Date: 20120825
  Serious: Yes (Other)
  Sender: FDA-Public Use
  Company Number: US-US-EMD SERONO, INC.-232179J09USA

PATIENT
  Sex: Female

DRUGS (9)
  1. REBIF [Suspect]
     Indication: MULTIPLE SCLEROSIS
     Route: 058
     Dates: start: 20060411
  2. METHSCOPOLAMINE [Concomitant]
     Indication: IRRITABLE BOWEL SYNDROME
     Route: 065
  3. LEXAPRO [Concomitant]
     Indication: STRESS
  4. LEVOTHYROXINE SODIUM [Concomitant]
     Indication: HYPOTHYROIDISM
     Route: 065
  5. PROTONIX [Concomitant]
     Indication: GASTROOESOPHAGEAL REFLUX DISEASE
     Route: 065
  6. PRAVASTATIN [Concomitant]
     Indication: LOW DENSITY LIPOPROTEIN INCREASED
     Route: 065
  7. CLONAZEPAM [Concomitant]
     Indication: ANXIETY
     Route: 065
  8. VITAMIN D [Concomitant]
     Indication: MULTIPLE SCLEROSIS
     Route: 065
  9. NEXIUM [Concomitant]
     Indication: GASTROOESOPHAGEAL REFLUX DISEASE
     Route: 065

REACTIONS (2)
  - CORNEAL BLEEDING [None]
  - KELOID SCAR [None]
